FAERS Safety Report 18214633 (Version 5)
Quarter: 2021Q1

REPORT INFORMATION
  Report Type: Spontaneous
  Country: US (occurrence: US)
  Receive Date: 20200831
  Receipt Date: 20210317
  Transmission Date: 20210419
  Serious: Yes (Hospitalization)
  Sender: FDA-Public Use
  Company Number: US-PFIZER INC-2020330321

PATIENT
  Age: 46 Year
  Sex: Male

DRUGS (2)
  1. BRAFTOVI [Suspect]
     Active Substance: ENCORAFENIB
     Indication: METASTASES TO LUNG
     Dosage: 450 MG, DAILY (EVERY MORNING )
     Dates: start: 20200130, end: 202011
  2. MEKTOVI [Suspect]
     Active Substance: BINIMETINIB
     Indication: METASTASES TO LUNG
     Dosage: 45 MG, 2X/DAY
     Dates: start: 20200130, end: 202011

REACTIONS (3)
  - Food poisoning [Unknown]
  - Generalised tonic-clonic seizure [Unknown]
  - Neoplasm progression [Unknown]

NARRATIVE: CASE EVENT DATE: 2020
